FAERS Safety Report 7483968-9 (Version None)
Quarter: 2011Q1

REPORT INFORMATION
  Report Type: 
  Country: None (occurrence: None)
  Receive Date: 20110309
  Receipt Date: 20110118
  Transmission Date: 20110831
  Serious: No
  Sender: FDA-Public Use
  Company Number: 2011SP002800

PATIENT
  Age: 17 Year
  Sex: Male

DRUGS (5)
  1. SAPHRIS [Suspect]
     Indication: SCHIZOPHRENIA
     Dosage: 10 MG;BID;SL
     Route: 060
     Dates: start: 20100901
  2. THIOTHIXENE [Concomitant]
  3. DEPAKOTE [Concomitant]
  4. CLONAZEPAM [Concomitant]
  5. RISPERDAL [Concomitant]

REACTIONS (1)
  - NAUSEA [None]
